FAERS Safety Report 15571281 (Version 1)
Quarter: 2018Q4

REPORT INFORMATION
  Report Type: Spontaneous
  Country: US (occurrence: US)
  Receive Date: 20181031
  Receipt Date: 20181031
  Transmission Date: 20190205
  Serious: Yes (Other)
  Sender: FDA-Public Use
  Company Number: US-MYLANLABS-2018M1081339

PATIENT
  Age: 30 Year
  Sex: Male

DRUGS (6)
  1. ALPRAZOLAM. [Suspect]
     Active Substance: ALPRAZOLAM
     Dosage: TOTAL DAILY DOSE (1MG-0.5MG-1MG); EXTENDED RELAESE
     Route: 065
  2. GABAPENTIN. [Suspect]
     Active Substance: GABAPENTIN
     Indication: ANXIOLYTIC THERAPY
     Dosage: TOTAL DAILY DOSE
     Route: 065
  3. LISDEXAMFETAMINE DIMESYLATE [Suspect]
     Active Substance: LISDEXAMFETAMINE DIMESYLATE
     Indication: PSYCHOTIC DISORDER
     Dosage: EVERY MORNING
     Route: 065
  4. NORTRIPTYLINE [Suspect]
     Active Substance: NORTRIPTYLINE
     Indication: ANTIDEPRESSANT THERAPY
     Dosage: EVERY BEDTIME
     Route: 065
  5. ESCITALOPRAM [Suspect]
     Active Substance: ESCITALOPRAM OXALATE
     Indication: ANTIDEPRESSANT THERAPY
     Dosage: EVERY MORNING
     Route: 065
  6. ALPRAZOLAM. [Suspect]
     Active Substance: ALPRAZOLAM
     Indication: ANXIOLYTIC THERAPY
     Dosage: EXTENDED RELEASE; TOTAL DAILY DOSE
     Route: 065

REACTIONS (3)
  - Anorgasmia [Recovering/Resolving]
  - Impaired quality of life [Unknown]
  - Treatment noncompliance [Unknown]
